FAERS Safety Report 4738730-4 (Version None)
Quarter: 2005Q3

REPORT INFORMATION
  Report Type: 
  Country: None (occurrence: None)
  Receive Date: 20050808
  Receipt Date: 20050808
  Transmission Date: 20060218
  Serious: Yes (Hospitalization)
  Sender: FDA-Public Use
  Company Number: None

PATIENT
  Age: 90 Year
  Sex: Female
  Weight: 48.9885 kg

DRUGS (5)
  1. ZYPREXA ZYDIS [Suspect]
     Indication: DELUSION
     Dosage: AT BEDTIME
     Dates: start: 20050610, end: 20050805
  2. ZYPREXA ZYDIS [Suspect]
     Indication: DEMENTIA
     Dosage: AT BEDTIME
     Dates: start: 20050610, end: 20050805
  3. ASCORBIC ACID [Concomitant]
  4. MULTI-VITAMINS [Concomitant]
  5. NITROGLYN 2% OINTMENT [Concomitant]

REACTIONS (3)
  - CONVULSION [None]
  - DEPRESSED LEVEL OF CONSCIOUSNESS [None]
  - HYPONATRAEMIA [None]
